FAERS Safety Report 18956563 (Version 2)
Quarter: 2021Q2

REPORT INFORMATION
  Report Type: Other
  Country: US (occurrence: US)
  Receive Date: 20210302
  Receipt Date: 20210520
  Transmission Date: 20210717
  Serious: Yes (Other)
  Sender: FDA-Public Use
  Company Number: US-ROCHE-2778532

PATIENT
  Sex: Female

DRUGS (16)
  1. ACTEMRA [Suspect]
     Active Substance: TOCILIZUMAB
  2. PREDNISONE. [Concomitant]
     Active Substance: PREDNISONE
  3. MAGNESIUM [Concomitant]
     Active Substance: MAGNESIUM
  4. DOXAZOSIN [Concomitant]
     Active Substance: DOXAZOSIN MESYLATE
  5. ACTEMRA [Suspect]
     Active Substance: TOCILIZUMAB
  6. ACTEMRA [Suspect]
     Active Substance: TOCILIZUMAB
     Indication: STEROID THERAPY
  7. ACTEMRA [Suspect]
     Active Substance: TOCILIZUMAB
  8. SULFAMETHOXAZOLE AND TRIMETHOPRIM [Concomitant]
     Active Substance: SULFAMETHOXAZOLE\TRIMETHOPRIM
  9. FUROSEMIDE. [Concomitant]
     Active Substance: FUROSEMIDE
  10. SPIRONOLACTONE. [Concomitant]
     Active Substance: SPIRONOLACTONE
  11. ACTEMRA [Suspect]
     Active Substance: TOCILIZUMAB
     Indication: GIANT CELL ARTERITIS
     Dosage: INJECT 162MG SUBCUTANEOUSLY EVERY 7 DAY(S)?STRENGTH: 162 MG/0.9 ML
     Route: 058
  12. ACTEMRA [Suspect]
     Active Substance: TOCILIZUMAB
  13. LOSARTAN. [Concomitant]
     Active Substance: LOSARTAN
  14. ATORVASTATIN [Concomitant]
     Active Substance: ATORVASTATIN
  15. TRAMADOL. [Concomitant]
     Active Substance: TRAMADOL
  16. LEVOTHYROXINE. [Concomitant]
     Active Substance: LEVOTHYROXINE

REACTIONS (2)
  - Cerebrovascular accident [Unknown]
  - Cardiac failure congestive [Unknown]
